FAERS Safety Report 8822661 (Version 2)
Quarter: 2012Q4

REPORT INFORMATION
  Report Type: 
  Country: GB (occurrence: GB)
  Receive Date: 20121003
  Receipt Date: 20121010
  Transmission Date: 20130627
  Serious: Yes (Hospitalization)
  Sender: FDA-Public Use
  Company Number: GB-MERCK-1209GBR004078

PATIENT

DRUGS (2)
  1. ISENTRESS [Suspect]
     Dosage: UNK
     Route: 048
  2. ATRIPLA [Suspect]
     Route: 048

REACTIONS (1)
  - Cardiac failure [Unknown]
